FAERS Safety Report 9302734 (Version 1)
Quarter: 2013Q2

REPORT INFORMATION
  Report Type: Spontaneous
  Country: CH (occurrence: CH)
  Receive Date: 20130522
  Receipt Date: 20130522
  Transmission Date: 20140414
  Serious: Yes (Other)
  Sender: FDA-Public Use
  Company Number: PHHY2013CH049606

PATIENT
  Age: 83 Year
  Sex: Female

DRUGS (7)
  1. EXELON PATCH [Suspect]
     Dosage: 4.6 MG, DAILY
     Route: 062
     Dates: start: 201210
  2. CLOPIXOL [Suspect]
     Dosage: 2 MG, QD
     Route: 048
  3. SERTRALINE [Concomitant]
     Dosage: 50 MG, QD
     Route: 048
  4. ZOLDORM [Concomitant]
     Dosage: 10 MG, QD
     Route: 048
  5. ASPIRIN CARDIO [Concomitant]
     Dosage: 100 MG, QD
     Route: 048
  6. EUTHYROX [Concomitant]
     Dosage: 0.05 MG, QD
     Route: 048
  7. ANXIOLIT [Concomitant]
     Dosage: 15 MG, QD

REACTIONS (3)
  - Cholestasis [Unknown]
  - Thrombocytopenia [Unknown]
  - Condition aggravated [Unknown]
